FAERS Safety Report 7182775-4 (Version None)
Quarter: 2010Q4

REPORT INFORMATION
  Report Type: 
  Country: None (occurrence: None)
  Receive Date: 20101221
  Receipt Date: 20100526
  Transmission Date: 20110411
  Serious: No
  Sender: FDA-Public Use
  Company Number: US-AMGEN-KDL411927

PATIENT

DRUGS (9)
  1. ENBREL [Suspect]
     Indication: PSORIASIS
     Dosage: 50 MG, QWK
     Route: 058
     Dates: start: 20090901
  2. ENBREL [Suspect]
     Indication: PSORIATIC ARTHROPATHY
  3. TAMSULOSIN HCL [Concomitant]
     Dosage: UNK UNK, UNK
  4. LISINOPRIL [Concomitant]
     Dosage: UNK UNK, UNK
  5. FINASTERIDE [Concomitant]
     Dosage: UNK UNK, UNK
  6. COLBEX SHAMPOO [Concomitant]
  7. ACETAMINOPHEN [Concomitant]
  8. UNSPECIFIED MEDICATION [Concomitant]
  9. HYDROCORTISONE [Concomitant]

REACTIONS (3)
  - DIABETES MELLITUS [None]
  - OBESITY [None]
  - PLATELET COUNT DECREASED [None]
